FAERS Safety Report 12350961 (Version 1)
Quarter: 2016Q2

REPORT INFORMATION
  Report Type: Spontaneous
  Country: US (occurrence: US)
  Receive Date: 20160420
  Receipt Date: 20160420
  Transmission Date: 20160815
  Serious: Yes (Hospitalization)
  Sender: FDA-Public Use
  Company Number: US-MALLINCKRODT-T201600904

PATIENT
  Age: 31 Year
  Sex: Female

DRUGS (1)
  1. GABLOFEN [Suspect]
     Active Substance: BACLOFEN
     Indication: MUSCLE SPASTICITY
     Dosage: 124.89 MCG/DAY
     Route: 037

REACTIONS (7)
  - Muscle spasticity [Unknown]
  - Muscle rigidity [Unknown]
  - Pruritus [Unknown]
  - Gait disturbance [Unknown]
  - Hypertonia [Unknown]
  - Seroma [Recovered/Resolved]
  - Device issue [Recovered/Resolved]

NARRATIVE: CASE EVENT DATE: 201512
